FAERS Safety Report 22043524 (Version 1)
Quarter: 2023Q1

REPORT INFORMATION
  Report Type: Report from Study
  Country: IN (occurrence: IN)
  Receive Date: 20230228
  Receipt Date: 20230228
  Transmission Date: 20230418
  Serious: Yes (Other)
  Sender: FDA-Public Use
  Company Number: IN-UCBSA-2023001134

PATIENT
  Age: 19 Year
  Sex: Female

DRUGS (8)
  1. KEPPRA [Suspect]
     Active Substance: LEVETIRACETAM
     Indication: Seizure
     Dosage: 500 MILLIGRAM, ONCE DAILY (QD)
     Route: 048
     Dates: start: 20221217
  2. KEPPRA [Suspect]
     Active Substance: LEVETIRACETAM
     Dosage: 500 MILLIGRAM, ONCE DAILY (QD)
     Route: 048
  3. ZENOXA [Concomitant]
     Indication: Seizure
     Dosage: 450 MILLIGRAM, 2X/DAY (BID)
     Route: 048
  4. LOBAZAM [Concomitant]
     Indication: Seizure
     Dosage: 10 MILLIGRAM, 2X/DAY (BID)
     Route: 048
  5. LEVESAM [Concomitant]
     Indication: Seizure
     Dosage: 25 MILLIGRAM, 2X/DAY (BID)
     Route: 048
  6. EPITRA ER [Concomitant]
     Indication: Seizure
     Dosage: 250 MILLIGRAM, ONCE DAILY (QD)
     Route: 048
  7. ZEN RETARD [Concomitant]
     Indication: Seizure
     Dosage: 300 MILLIGRAM, ONCE DAILY (QD)
     Route: 048
  8. PHENOBARBITAL [Concomitant]
     Active Substance: PHENOBARBITAL
     Indication: Seizure
     Dosage: 60 MILLIGRAM, ONCE DAILY (QD)
     Route: 048

REACTIONS (9)
  - Seizure [Recovered/Resolved]
  - Somnolence [Not Recovered/Not Resolved]
  - Restlessness [Recovered/Resolved]
  - Product dose omission issue [Unknown]
  - Hypoaesthesia [Recovered/Resolved]
  - Dyskinesia [Recovered/Resolved]
  - Staring [Recovered/Resolved]
  - Pyrexia [Recovered/Resolved]
  - Nasopharyngitis [Recovered/Resolved]

NARRATIVE: CASE EVENT DATE: 20221217
